FAERS Safety Report 9199481 (Version 4)
Quarter: 2014Q2

REPORT INFORMATION
  Report Type: Spontaneous
  Country: US (occurrence: US)
  Receive Date: 20130329
  Receipt Date: 20140603
  Transmission Date: 20141212
  Serious: No
  Sender: FDA-Public Use
  Company Number: US-009507513-1303USA012743

PATIENT
  Sex: Male
  Weight: 87.98 kg

DRUGS (12)
  1. PROPECIA [Suspect]
     Indication: ANDROGENETIC ALOPECIA
     Dosage: 1 MG, UNK
     Route: 048
     Dates: start: 1998, end: 20000908
  2. PROSCAR [Suspect]
     Indication: PROSTATOMEGALY
     Dosage: 5 MG, UNK
     Route: 048
     Dates: start: 20000908, end: 2002
  3. PROSCAR [Suspect]
     Indication: PROSTATISM
  4. FINASTERIDE [Suspect]
     Indication: ALOPECIA
     Dosage: 1 MG, UNK
     Route: 048
     Dates: start: 1998, end: 2002
  5. FINASTERIDE [Suspect]
     Indication: PROSTATOMEGALY
     Dosage: 5 MG, UNK
     Route: 048
     Dates: start: 1998, end: 2002
  6. FLONASE [Concomitant]
     Indication: SEASONAL ALLERGY
     Dosage: I-II PUFFS DAILY
  7. FLONASE [Concomitant]
     Indication: RHINITIS ALLERGIC
  8. CLARITIN [Concomitant]
  9. FLOMAX (TAMSULOSIN HYDROCHLORIDE) [Concomitant]
     Indication: PROSTATISM
  10. Z-PAK [Concomitant]
     Indication: PRODUCTIVE COUGH
     Dosage: UNK
     Dates: start: 19980108
  11. ENTEX LA (NEW FORMULA) [Concomitant]
     Indication: PRODUCTIVE COUGH
     Dosage: UNK
     Dates: start: 19980108
  12. CLAFORAN [Concomitant]
     Indication: PRODUCTIVE COUGH
     Dosage: 500 DF, UNK
     Dates: start: 19980108

REACTIONS (66)
  - Cognitive disorder [Not Recovered/Not Resolved]
  - Anxiety [Not Recovered/Not Resolved]
  - Suicidal ideation [Not Recovered/Not Resolved]
  - Antidepressant therapy [Unknown]
  - Pollakiuria [Unknown]
  - Tendonitis [Unknown]
  - Plantar fasciitis [Unknown]
  - Chest pain [Unknown]
  - Ear disorder [Unknown]
  - Nasal disorder [Unknown]
  - Pharyngeal disorder [Unknown]
  - Dyspepsia [Unknown]
  - Asthenia [Unknown]
  - Fatigue [Unknown]
  - Palpitations [Unknown]
  - Pulse abnormal [Unknown]
  - Sleep disorder [Unknown]
  - Hypertension [Unknown]
  - Blood glucose increased [Unknown]
  - Diabetes mellitus [Unknown]
  - Gastrooesophageal reflux disease [Unknown]
  - Dyspnoea exertional [Unknown]
  - Headache [Unknown]
  - Nausea [Unknown]
  - Vision blurred [Unknown]
  - Dizziness [Unknown]
  - Diabetic neuropathy [Unknown]
  - Urinary tract infection [Unknown]
  - Nocturia [Unknown]
  - Urinary hesitation [Unknown]
  - Micturition urgency [Unknown]
  - Urinary incontinence [Unknown]
  - Diarrhoea haemorrhagic [Unknown]
  - Pyloroplasty [Unknown]
  - Syncope [Unknown]
  - Prostatitis [Not Recovered/Not Resolved]
  - Bladder neck obstruction [Unknown]
  - Cystitis interstitial [Unknown]
  - Haemorrhoids [Unknown]
  - Dermal cyst [Unknown]
  - Sebaceous cyst excision [Unknown]
  - Dermatitis contact [Unknown]
  - Dry mouth [Unknown]
  - Productive cough [Unknown]
  - Oropharyngeal pain [Unknown]
  - Haematochezia [Unknown]
  - Diarrhoea [Unknown]
  - Sinusitis [Unknown]
  - Nasopharyngitis [Unknown]
  - Sinusitis [Unknown]
  - Nasopharyngitis [Unknown]
  - Back pain [Unknown]
  - Pelvic floor muscle weakness [Unknown]
  - Testicular cyst [Unknown]
  - Haematuria [Unknown]
  - Musculoskeletal chest pain [Unknown]
  - Dizziness [Unknown]
  - Chest pain [Unknown]
  - Sexual dysfunction [Not Recovered/Not Resolved]
  - Erectile dysfunction [Unknown]
  - Loss of libido [Unknown]
  - Ejaculation failure [Unknown]
  - Gynaecomastia [Unknown]
  - Depression [Not Recovered/Not Resolved]
  - Drug ineffective [Unknown]
  - Ejaculation disorder [Unknown]
